FAERS Safety Report 6076045-5 (Version None)
Quarter: 2009Q1

REPORT INFORMATION
  Report Type: 
  Country: None (occurrence: None)
  Receive Date: 20090212
  Receipt Date: 20090209
  Transmission Date: 20090719
  Serious: Yes (Life-Threatening, Hospitalization, Other)
  Sender: FDA-Public Use
  Company Number: DE-ELI_LILLY_AND_COMPANY-DE200902001718

PATIENT
  Sex: Male

DRUGS (2)
  1. ALIMTA [Suspect]
  2. CISPLATIN [Concomitant]

REACTIONS (2)
  - HYPOALBUMINAEMIA [None]
  - SHOCK [None]
